FAERS Safety Report 7532278-X (Version None)
Quarter: 2011Q2

REPORT INFORMATION
  Report Type: 
  Country: None (occurrence: None)
  Receive Date: 20110608
  Receipt Date: 20110606
  Transmission Date: 20111010
  Serious: Yes (Death, Other)
  Sender: FDA-Public Use
  Company Number: IT-BRISTOL-MYERS SQUIBB COMPANY-15649940

PATIENT
  Age: 57 Year
  Sex: Male

DRUGS (1)
  1. IPILIMUMAB [Suspect]
     Indication: MALIGNANT MELANOMA
     Dosage: DF = 135 (UNITS NOT PROVIDED)
     Route: 042
     Dates: start: 20100816, end: 20101018

REACTIONS (2)
  - ANAEMIA [None]
  - NEOPLASM MALIGNANT [None]
